FAERS Safety Report 11849239 (Version 1)
Quarter: 2015Q4

REPORT INFORMATION
  Report Type: Spontaneous
  Country: US (occurrence: None)
  Receive Date: 20151217
  Receipt Date: 20151217
  Transmission Date: 20160305
  Serious: No
  Sender: FDA-Public Use
  Company Number: None

PATIENT
  Age: 29 Year
  Sex: Female
  Weight: 56.25 kg

DRUGS (10)
  1. MONTELUKAST SODIUM 10 MG [Suspect]
     Active Substance: MONTELUKAST SODIUM
     Indication: ASTHMA
     Dosage: 1 PILL ONCE DAILY TAKEN BY MOUTH
     Route: 048
     Dates: start: 20150914, end: 20151215
  2. BACTERIUM [Concomitant]
  3. JUNEL [Concomitant]
     Active Substance: ETHINYL ESTRADIOL\NORETHINDRONE ACETATE
  4. CRANBERRY SUPPLEMENT [Concomitant]
  5. TUMERIC SUPPLEMENT [Concomitant]
  6. VITAMIN D [Concomitant]
     Active Substance: CHOLECALCIFEROL
  7. MONTELUKAST SODIUM 10 MG [Suspect]
     Active Substance: MONTELUKAST SODIUM
     Indication: MULTIPLE ALLERGIES
     Dosage: 1 PILL ONCE DAILY TAKEN BY MOUTH
     Route: 048
     Dates: start: 20150914, end: 20151215
  8. VITAMIN E SUPPLEMENT [Concomitant]
  9. WELLBUTRIN [Concomitant]
     Active Substance: BUPROPION HYDROCHLORIDE
  10. MULTI VITAMIN [Concomitant]
     Active Substance: VITAMINS

REACTIONS (11)
  - Restlessness [None]
  - Headache [None]
  - Insomnia [None]
  - Hallucination [None]
  - Nightmare [None]
  - Abdominal pain [None]
  - Suicidal ideation [None]
  - Abnormal dreams [None]
  - Back pain [None]
  - Fear [None]
  - Paranoia [None]

NARRATIVE: CASE EVENT DATE: 20151215
